FAERS Safety Report 9972847 (Version 2)
Quarter: 2014Q1

REPORT INFORMATION
  Report Type: Report from Study
  Country: BE (occurrence: BE)
  Receive Date: 20140306
  Receipt Date: 20140311
  Transmission Date: 20141002
  Serious: Yes (Hospitalization)
  Sender: FDA-Public Use
  Company Number: BE-JNJFOC-20140300280

PATIENT
  Age: 15 Year
  Sex: Female
  Weight: 67.7 kg

DRUGS (3)
  1. REMICADE [Suspect]
     Indication: CROHN^S DISEASE
     Route: 042
     Dates: start: 20110727
  2. FORLAX [Concomitant]
     Route: 065
  3. OMEPRAZOLE [Concomitant]
     Route: 065

REACTIONS (1)
  - Gastritis [Recovered/Resolved]
